FAERS Safety Report 22216440 (Version 1)
Quarter: 2023Q2

REPORT INFORMATION
  Report Type: Spontaneous
  Country: MA (occurrence: MA)
  Receive Date: 20230417
  Receipt Date: 20230417
  Transmission Date: 20230722
  Serious: Yes (Life-Threatening, Hospitalization, Other)
  Sender: FDA-Public Use
  Company Number: MA-MACLEODS PHARMACEUTICALS US LTD-MAC2023040771

PATIENT

DRUGS (3)
  1. OLANZAPINE [Suspect]
     Active Substance: OLANZAPINE
     Indication: Schizophrenia
     Dosage: 5 MILLIGRAM, QD
     Route: 065
     Dates: start: 2022
  2. HALOPERIDOL [Suspect]
     Active Substance: HALOPERIDOL
     Indication: Schizophrenia
     Dosage: 5 GTT, QD (2 MG/DL)
     Route: 065
     Dates: start: 2022
  3. LEVOMEPROMAZINE [Concomitant]
     Active Substance: LEVOMEPROMAZINE
     Indication: Schizophrenia
     Dosage: 0.25 DOSAGE FORM, QD
     Route: 065
     Dates: start: 2022

REACTIONS (3)
  - Right ventricular dilatation [Recovering/Resolving]
  - Systolic dysfunction [Recovering/Resolving]
  - Pulmonary embolism [Recovering/Resolving]
